FAERS Safety Report 9599462 (Version 1)
Quarter: 2013Q4

REPORT INFORMATION
  Report Type: Spontaneous
  Country: US (occurrence: US)
  Receive Date: 20131004
  Receipt Date: 20131004
  Transmission Date: 20140711
  Serious: No
  Sender: FDA-Public Use
  Company Number: US-AMGEN-USASP2013029418

PATIENT
  Age: 50 Year
  Sex: Female

DRUGS (21)
  1. ENBREL [Suspect]
     Indication: PRODUCT USED FOR UNKNOWN INDICATION
     Dosage: 50 MG, QWK
     Route: 058
  2. CRESTOR [Concomitant]
     Dosage: 10 MG, UNK
  3. AMBIEN [Concomitant]
     Dosage: 5 MG, UNK
  4. ADVAIR [Concomitant]
     Dosage: 100/50, UNK
  5. ARAVA [Concomitant]
     Dosage: 10 MG, UNK
  6. LOSARTAN/HCT [Concomitant]
     Dosage: 50-12.5
  7. VITAMIN B12                        /00056201/ [Concomitant]
     Dosage: 100 MUG, UNK
  8. LIDODERM [Concomitant]
     Dosage: 5 %, UNK
  9. METFORMIN [Concomitant]
     Dosage: 500 MG, UNK
  10. NORVASC [Concomitant]
     Dosage: 2.5 MG, UNK
  11. PREDNISONE [Concomitant]
     Dosage: 1 MG, UNK
  12. NEXIUM                             /01479303/ [Concomitant]
     Dosage: 20 MG, UNK
  13. COREG [Concomitant]
     Dosage: 3.125 MG, UNK
  14. NEUROTIN                           /01003001/ [Concomitant]
     Dosage: 100 MG, UNK
  15. BUPROPION [Concomitant]
     Dosage: 100 MG, UNK
  16. ACTONEL [Concomitant]
     Dosage: 5 MG, UNK
  17. VITAMIN D                          /00107901/ [Concomitant]
     Dosage: 400 UNIT, UNK
  18. TIZANIDINE [Concomitant]
     Dosage: 2 MG, UNK
  19. VICODIN [Concomitant]
     Dosage: 5-500 MG, UNK
  20. BENADRYL                           /00000402/ [Concomitant]
     Dosage: 25 MG, UNK
  21. LYSINE [Concomitant]
     Dosage: 1000 MG, UNK

REACTIONS (1)
  - Nasopharyngitis [Unknown]
